FAERS Safety Report 6982443-5 (Version None)
Quarter: 2010Q3

REPORT INFORMATION
  Report Type: 
  Country: None (occurrence: None)
  Receive Date: 20100914
  Receipt Date: 20100107
  Transmission Date: 20110219
  Serious: No
  Sender: FDA-Public Use
  Company Number: US-PFIZER INC-2010003238

PATIENT
  Sex: Female
  Weight: 92.5 kg

DRUGS (12)
  1. LYRICA [Suspect]
     Indication: SCIATICA
     Dosage: 300 MG, 1X/DAY
     Route: 048
     Dates: start: 20091203
  2. METFORMIN [Concomitant]
     Indication: DIABETES MELLITUS
     Dosage: UNK
  3. GLIMEPIRIDE [Concomitant]
     Indication: DIABETES MELLITUS
     Dosage: UNK
  4. ACTOS [Concomitant]
     Indication: DIABETES MELLITUS
     Dosage: UNK
  5. LISINOPRIL [Concomitant]
     Indication: BLOOD CHOLESTEROL INCREASED
     Dosage: UNK
  6. LISINOPRIL [Concomitant]
     Indication: BLOOD TRIGLYCERIDES INCREASED
  7. SIMVASTATIN [Concomitant]
     Indication: BLOOD CHOLESTEROL INCREASED
     Dosage: UNK
  8. SIMVASTATIN [Concomitant]
     Indication: BLOOD TRIGLYCERIDES INCREASED
  9. VICODIN [Concomitant]
     Dosage: UNK
  10. ZANAFLEX [Concomitant]
     Dosage: UNK
  11. NORLESTRIN FE [Concomitant]
     Indication: CONTRACEPTION
     Dosage: UNK
  12. SPIRONOLACTONE [Concomitant]
     Indication: POLYCYSTIC OVARIES
     Dosage: UNK

REACTIONS (1)
  - WEIGHT INCREASED [None]
